FAERS Safety Report 8842712 (Version 1)
Quarter: 2012Q4

REPORT INFORMATION
  Report Type: 
  Country: US (occurrence: US)
  Receive Date: 20121016
  Receipt Date: 20121016
  Transmission Date: 20130627
  Serious: Yes (Hospitalization)
  Sender: FDA-Public Use
  Company Number: US-B.I. PHARMACEUTICALS,INC./RIDGEFIELD-2012-BP-24956BP

PATIENT
  Age: 78 None
  Sex: Male
  Weight: 75 kg

DRUGS (9)
  1. SPIRIVA [Suspect]
     Indication: CHRONIC OBSTRUCTIVE PULMONARY DISEASE
     Dosage: 18 mcg
     Route: 055
     Dates: start: 2006
  2. LASIX [Concomitant]
     Indication: FLUID RETENTION
     Dosage: 40 mg
     Route: 048
     Dates: start: 2005
  3. ADVAIR DISKUS [Concomitant]
     Indication: CHRONIC OBSTRUCTIVE PULMONARY DISEASE
     Dosage: (Inhalation Aerosol) Strength: 250/50; Daily Dose: 500/100
     Route: 055
     Dates: start: 2006
  4. KLOR-CON [Concomitant]
     Indication: MINERAL SUPPLEMENTATION
     Dosage: 20 mEq
     Route: 048
     Dates: start: 2005
  5. NEBULIZER [Concomitant]
     Route: 055
  6. DIGOXIN [Concomitant]
     Route: 048
     Dates: start: 2005
  7. DIGOXIN [Concomitant]
     Route: 048
     Dates: start: 2005
  8. PROAIR HFC [Concomitant]
     Indication: INHALATION THERAPY
     Route: 055
     Dates: start: 2006
  9. CAPTOPRIL [Concomitant]
     Indication: HYPERTENSION
     Dosage: 25 mg
     Route: 048
     Dates: start: 2005

REACTIONS (5)
  - Pneumonia [Recovered/Resolved]
  - Respiratory distress [Not Recovered/Not Resolved]
  - Dyspnoea [Not Recovered/Not Resolved]
  - Drug effect decreased [Not Recovered/Not Resolved]
  - Pneumonia [Not Recovered/Not Resolved]
